FAERS Safety Report 8130358-1 (Version None)
Quarter: 2012Q1

REPORT INFORMATION
  Report Type: 
  Country: None (occurrence: None)
  Receive Date: 20120210
  Receipt Date: 20120206
  Transmission Date: 20120608
  Serious: Yes (Other)
  Sender: FDA-Public Use
  Company Number: PHHY2011JP86426

PATIENT
  Age: 17 Year
  Sex: Male

DRUGS (2)
  1. TEGRETOL [Suspect]
     Indication: EPILEPSY
     Dosage: 400 MG, UNK
     Route: 048
     Dates: start: 20091109, end: 20100726
  2. CLONAZEPAM [Concomitant]
     Dosage: UNK UKN, UNK
     Dates: start: 20100726

REACTIONS (1)
  - HYPOGAMMAGLOBULINAEMIA [None]
